FAERS Safety Report 25353620 (Version 1)
Quarter: 2025Q2

REPORT INFORMATION
  Report Type: Spontaneous
  Country: FR (occurrence: FR)
  Receive Date: 20250523
  Receipt Date: 20250523
  Transmission Date: 20250716
  Serious: Yes (Other)
  Sender: MYLAN
  Company Number: None

PATIENT
  Weight: 1 kg

DRUGS (16)
  1. VENLAFAXINE [Suspect]
     Active Substance: VENLAFAXINE HYDROCHLORIDE
     Indication: Mixed anxiety and depressive disorder
     Dosage: 75 MILLIGRAM, QD
     Dates: start: 202410, end: 20250101
  2. VENLAFAXINE [Suspect]
     Active Substance: VENLAFAXINE HYDROCHLORIDE
     Dosage: 75 MILLIGRAM, QD
     Dates: start: 202410, end: 20250101
  3. VENLAFAXINE [Suspect]
     Active Substance: VENLAFAXINE HYDROCHLORIDE
     Dosage: 75 MILLIGRAM, QD
     Route: 064
     Dates: start: 202410, end: 20250101
  4. VENLAFAXINE [Suspect]
     Active Substance: VENLAFAXINE HYDROCHLORIDE
     Dosage: 75 MILLIGRAM, QD
     Route: 064
     Dates: start: 202410, end: 20250101
  5. VENLAFAXINE [Suspect]
     Active Substance: VENLAFAXINE HYDROCHLORIDE
     Dosage: 75 MILLIGRAM, QD
     Dates: start: 202410, end: 20250101
  6. VENLAFAXINE [Suspect]
     Active Substance: VENLAFAXINE HYDROCHLORIDE
     Dosage: 75 MILLIGRAM, QD
     Dates: start: 202410, end: 20250101
  7. VENLAFAXINE [Suspect]
     Active Substance: VENLAFAXINE HYDROCHLORIDE
     Dosage: 75 MILLIGRAM, QD
     Route: 064
     Dates: start: 202410, end: 20250101
  8. VENLAFAXINE [Suspect]
     Active Substance: VENLAFAXINE HYDROCHLORIDE
     Dosage: 75 MILLIGRAM, QD
     Route: 064
     Dates: start: 202410, end: 20250101
  9. OXAZEPAM [Suspect]
     Active Substance: OXAZEPAM
     Indication: Mixed anxiety and depressive disorder
     Dosage: 25 MILLIGRAM, QD
     Dates: start: 202410
  10. OXAZEPAM [Suspect]
     Active Substance: OXAZEPAM
     Dosage: 25 MILLIGRAM, QD
     Dates: start: 202410
  11. OXAZEPAM [Suspect]
     Active Substance: OXAZEPAM
     Dosage: 25 MILLIGRAM, QD
     Route: 064
     Dates: start: 202410
  12. OXAZEPAM [Suspect]
     Active Substance: OXAZEPAM
     Dosage: 25 MILLIGRAM, QD
     Route: 064
     Dates: start: 202410
  13. OXAZEPAM [Suspect]
     Active Substance: OXAZEPAM
     Dosage: 25 MILLIGRAM, QD
     Dates: start: 202410
  14. OXAZEPAM [Suspect]
     Active Substance: OXAZEPAM
     Dosage: 25 MILLIGRAM, QD
     Dates: start: 202410
  15. OXAZEPAM [Suspect]
     Active Substance: OXAZEPAM
     Dosage: 25 MILLIGRAM, QD
     Route: 064
     Dates: start: 202410
  16. OXAZEPAM [Suspect]
     Active Substance: OXAZEPAM
     Dosage: 25 MILLIGRAM, QD
     Route: 064
     Dates: start: 202410

REACTIONS (2)
  - Foetal hypokinesia [Not Recovered/Not Resolved]
  - Foetal exposure during pregnancy [Recovered/Resolved]

NARRATIVE: CASE EVENT DATE: 20250502
